FAERS Safety Report 9939494 (Version 1)
Quarter: 2014Q1

REPORT INFORMATION
  Report Type: Report from Study
  Country: US (occurrence: US)
  Receive Date: 20140303
  Receipt Date: 20140303
  Transmission Date: 20141002
  Serious: No
  Sender: FDA-Public Use
  Company Number: US-ABBVIE-13P-163-1032146-00

PATIENT
  Age: 30 Year
  Sex: Female
  Weight: 79.45 kg

DRUGS (15)
  1. HUMIRA [Suspect]
     Indication: HIDRADENITIS
     Dates: start: 20121206
  2. DOXYCYCLINE [Concomitant]
     Indication: HIDRADENITIS
  3. LIPITOR [Concomitant]
     Indication: BLOOD CHOLESTEROL INCREASED
  4. ZOMIG [Concomitant]
     Indication: MIGRAINE
  5. SUMATRIPTAN [Concomitant]
     Indication: MIGRAINE
  6. MODAFINIL [Concomitant]
     Indication: NARCOLEPSY
  7. MODAFINIL [Concomitant]
     Indication: NARCOLEPSY
  8. PAROXETINE [Concomitant]
     Indication: DEPRESSION
  9. METFORMIN [Concomitant]
     Indication: HIDRADENITIS
  10. BYSTOLIC [Concomitant]
     Indication: HYPERTENSION
  11. UNKNOWN BIRTH CONTROL PILLS [Concomitant]
     Indication: CONTRACEPTION
  12. SEASONALE [Concomitant]
     Indication: POLYMENORRHOEA
  13. SEASONALE [Concomitant]
     Indication: MIGRAINE PROPHYLAXIS
  14. LEVOTHYROXINE [Concomitant]
     Indication: HYPOTHYROIDISM
  15. TOPAMAX [Concomitant]
     Indication: MIGRAINE

REACTIONS (1)
  - Off label use [Not Recovered/Not Resolved]
